FAERS Safety Report 5946524-7 (Version None)
Quarter: 2008Q4

REPORT INFORMATION
  Report Type: 
  Country: None (occurrence: None)
  Receive Date: 20081110
  Receipt Date: 20081030
  Transmission Date: 20090506
  Serious: Yes (Hospitalization)
  Sender: FDA-Public Use
  Company Number: B0544272A

PATIENT
  Age: 47 Year
  Sex: Male

DRUGS (4)
  1. ARIXTRA [Suspect]
     Indication: THROMBOSIS PROPHYLAXIS
     Dosage: 7.5MG PER DAY
     Route: 065
     Dates: start: 20080811, end: 20080908
  2. AUGMENTIN '125' [Concomitant]
     Dosage: 1G THREE TIMES PER DAY
     Route: 048
  3. DAFALGAN [Concomitant]
  4. PREVISCAN [Concomitant]
     Dates: start: 20080901

REACTIONS (17)
  - ABDOMINAL DISCOMFORT [None]
  - CONTUSION [None]
  - HAEMATOMA [None]
  - HEADACHE [None]
  - HYPERHIDROSIS [None]
  - ILL-DEFINED DISORDER [None]
  - MALAISE [None]
  - MUSCLE SPASMS [None]
  - OEDEMA PERIPHERAL [None]
  - PAIN IN EXTREMITY [None]
  - PALLOR [None]
  - PARALYSIS [None]
  - PERITONEAL EFFUSION [None]
  - SEPTIC SHOCK [None]
  - SYNCOPE [None]
  - TREMOR [None]
  - VOMITING [None]
